FAERS Safety Report 9050790 (Version 1)
Quarter: 2013Q1

REPORT INFORMATION
  Report Type: Spontaneous
  Country: US (occurrence: US)
  Receive Date: 20130205
  Receipt Date: 20130205
  Transmission Date: 20140127
  Serious: No
  Sender: FDA-Public Use
  Company Number: US-BIOGENIDEC-2013BI008345

PATIENT
  Age: 39 None
  Sex: Female

DRUGS (1)
  1. TYSABRI [Suspect]
     Indication: MULTIPLE SCLEROSIS
     Route: 042
     Dates: start: 20120215

REACTIONS (4)
  - Nocturnal dyspnoea [Recovered/Resolved]
  - Restless legs syndrome [Not Recovered/Not Resolved]
  - Dermatitis contact [Unknown]
  - Multiple allergies [Unknown]
